FAERS Safety Report 5656525-4 (Version None)
Quarter: 2008Q1

REPORT INFORMATION
  Report Type: 
  Country: None (occurrence: None)
  Receive Date: 20080309
  Receipt Date: 20080131
  Transmission Date: 20080703
  Serious: No
  Sender: FDA-Public Use
  Company Number: US-BAYER-200810511BCC

PATIENT
  Age: 16 Year
  Sex: Male
  Weight: 100 kg

DRUGS (2)
  1. ALEVE [Suspect]
     Indication: PHARYNGOLARYNGEAL PAIN
     Dosage: UNIT DOSE: 220 MG
     Route: 048
     Dates: start: 20080131
  2. CONTACT COLD + FLU [Concomitant]
     Indication: PHARYNGOLARYNGEAL PAIN

REACTIONS (1)
  - ABDOMINAL PAIN [None]
